FAERS Safety Report 4489041-6 (Version None)
Quarter: 2004Q4

REPORT INFORMATION
  Report Type: 
  Country: None (occurrence: None)
  Receive Date: 20041027
  Receipt Date: 20040622
  Transmission Date: 20050328
  Serious: Yes (Hospitalization)
  Sender: FDA-Public Use
  Company Number: CIO04015307

PATIENT
  Age: 93 Year
  Sex: Female
  Weight: 81.2 kg

DRUGS (7)
  1. METAMUCIL SUGAR-FREE SMOOTH TEXTURE, ORANGE FLAVOR (PSYLLIUM HYDROPHIL [Suspect]
     Dosage: ORAL
     Route: 048
     Dates: end: 20040222
  2. OCUVITE (TOCOPHEROL) [Concomitant]
  3. LASIX [Concomitant]
  4. ANTIBIOTICS [Concomitant]
  5. MULTIVITAMIN [Concomitant]
  6. CARDIAC THERAPY [Concomitant]
  7. CRANBERRY PILLS [Concomitant]

REACTIONS (3)
  - CIRCULATORY COLLAPSE [None]
  - OEDEMA [None]
  - PULMONARY OEDEMA [None]
